FAERS Safety Report 6004516-6 (Version None)
Quarter: 2008Q4

REPORT INFORMATION
  Report Type: 
  Country: None (occurrence: None)
  Receive Date: 20081216
  Receipt Date: 20081002
  Transmission Date: 20090506
  Serious: No
  Sender: FDA-Public Use
  Company Number: US-BAYER-200814612BCC

PATIENT
  Age: 25 Year
  Sex: Female
  Weight: 88 kg

DRUGS (5)
  1. ALEVE (CAPLET) [Suspect]
     Indication: HEADACHE
     Dosage: TOTAL DAILY DOSE: 880 MG  UNIT DOSE: 220 MG
     Route: 048
     Dates: start: 20081002
  2. INSULIN [Concomitant]
  3. NAPROXEN [Concomitant]
     Dosage: TOTAL DAILY DOSE: 1000 MG
  4. SKELAXIN [Concomitant]
  5. LORTAB [Concomitant]

REACTIONS (1)
  - NO ADVERSE EVENT [None]
